FAERS Safety Report 16794268 (Version 11)
Quarter: 2020Q3

REPORT INFORMATION
  Report Type: Report from Study
  Country: IN (occurrence: IN)
  Receive Date: 20190911
  Receipt Date: 20200721
  Transmission Date: 20201102
  Serious: Yes (Death, Life-Threatening, Hospitalization, Other)
  Sender: FDA-Public Use
  Company Number: PHHO2019IN008929

PATIENT
  Age: 63 Year
  Sex: Male
  Weight: 44 kg

DRUGS (13)
  1. COMPARATOR PEMBROLIZUMAB [Suspect]
     Active Substance: PEMBROLIZUMAB
     Indication: NON-SMALL CELL LUNG CANCER
     Dosage: 200 MG, ONCE/SINGLE
     Route: 042
     Dates: start: 20190820
  2. G?CSF [Concomitant]
     Active Substance: GRANULOCYTE COLONY-STIMULATING FACTOR NOS
     Indication: PROPHYLAXIS
     Dosage: 300 UG
     Route: 058
     Dates: start: 20190829, end: 20190829
  3. LACTATED RINGERS SOLUTION [Concomitant]
     Active Substance: CALCIUM CHLORIDE\POTASSIUM CHLORIDE\SODIUM CHLORIDE\SODIUM LACTATE
     Indication: DIARRHOEA
     Dosage: UNK
     Route: 065
     Dates: start: 20190829, end: 20190830
  4. COMPARATOR CARBOPLATIN [Suspect]
     Active Substance: CARBOPLATIN
     Indication: NON-SMALL CELL LUNG CANCER
     Dosage: 620 MG, ONCE/SINGLE
     Route: 042
     Dates: start: 20190820
  5. COMPARATOR NAB?PACLITAXEL [Suspect]
     Active Substance: PACLITAXEL
     Indication: NON-SMALL CELL LUNG CANCER
     Dosage: 142 MG, QW
     Route: 042
     Dates: start: 20190820
  6. CIPROFLOXACIN. [Concomitant]
     Active Substance: CIPROFLOXACIN
     Indication: DIARRHOEA
     Dosage: 100 ML, BID
     Route: 042
     Dates: start: 20190829, end: 20190830
  7. LOPERAMIDE [Concomitant]
     Active Substance: LOPERAMIDE
     Indication: DIARRHOEA
     Dosage: UNK
     Route: 065
     Dates: start: 20190829, end: 20190829
  8. AUGMENTIN [Concomitant]
     Active Substance: AMOXICILLIN\CLAVULANATE POTASSIUM
     Indication: PLEURAL EFFUSION
     Dosage: UNK
     Route: 065
     Dates: start: 20190817, end: 20190819
  9. AMIKACIN. [Concomitant]
     Active Substance: AMIKACIN
     Indication: DIARRHOEA
     Dosage: 600 MG, QD
     Route: 042
     Dates: start: 20190829, end: 20190830
  10. SPORLAC [Concomitant]
     Indication: DIARRHOEA
     Dosage: UNK
     Route: 048
     Dates: start: 20190829, end: 20190830
  11. PLACEBO [Suspect]
     Active Substance: UNSPECIFIED INGREDIENT
     Indication: NON-SMALL CELL LUNG CANCER
     Dosage: UNK
     Route: 058
     Dates: start: 20190820
  12. METROGYL [Concomitant]
     Active Substance: METRONIDAZOLE
     Indication: DIARRHOEA
     Dosage: 100 ML, TID
     Route: 042
     Dates: start: 20190829, end: 20190830
  13. AUGMENTIN [Concomitant]
     Active Substance: AMOXICILLIN\CLAVULANATE POTASSIUM
     Indication: PLEURAL EFFUSION
     Dosage: UNK
     Route: 065
     Dates: start: 20190827, end: 20190828

REACTIONS (2)
  - Febrile neutropenia [Fatal]
  - Sepsis [Fatal]

NARRATIVE: CASE EVENT DATE: 20190903
